FAERS Safety Report 21178490 (Version 1)
Quarter: 2022Q3

REPORT INFORMATION
  Report Type: Spontaneous
  Country: US (occurrence: US)
  Receive Date: 20220805
  Receipt Date: 20220805
  Transmission Date: 20221027
  Serious: Yes (Other)
  Sender: FDA-Public Use
  Company Number: US-FreseniusKabi-FK202210760

PATIENT
  Age: 13 Month
  Sex: Male

DRUGS (2)
  1. CARBOPLATIN [Suspect]
     Active Substance: CARBOPLATIN
     Indication: Ganglioglioma
     Dosage: (175  MG/M2.)
  2. VINCRISTINE [Suspect]
     Active Substance: VINCRISTINE
     Indication: Ganglioglioma
     Dosage: (1.5 MG/M2)

REACTIONS (3)
  - Ascites [Unknown]
  - Diarrhoea [Unknown]
  - Vomiting [Unknown]
